FAERS Safety Report 24250376 (Version 3)
Quarter: 2024Q3

REPORT INFORMATION
  Report Type: Spontaneous
  Country: CN (occurrence: CN)
  Receive Date: 20240826
  Receipt Date: 20240830
  Transmission Date: 20241017
  Serious: Yes (Life-Threatening, Hospitalization, Other)
  Sender: NOVARTIS
  Company Number: CN-002147023-NVSC2024CN171197

PATIENT
  Age: 16 Year
  Sex: Female
  Weight: 55 kg

DRUGS (2)
  1. CYCLOSPORINE [Suspect]
     Active Substance: CYCLOSPORINE
     Indication: Stem cell transplant
     Dosage: 0.087 G, BID (PUMP INJECTION)
     Route: 065
     Dates: start: 20240308, end: 20240309
  2. SODIUM CHLORIDE [Concomitant]
     Active Substance: SODIUM CHLORIDE
     Indication: Stem cell transplant
     Dosage: 50 ML, BID (PUMP INJECTION)
     Route: 065
     Dates: start: 20240308, end: 20240309

REACTIONS (11)
  - Anaphylactic shock [Recovering/Resolving]
  - Breath sounds abnormal [Unknown]
  - Indifference [Recovered/Resolved]
  - Oxygen saturation decreased [Recovering/Resolving]
  - Respiratory rate increased [Recovering/Resolving]
  - Rash [Unknown]
  - Pruritus [Unknown]
  - Blood pressure decreased [Recovering/Resolving]
  - Foaming at mouth [Recovered/Resolved]
  - Pulse abnormal [Unknown]
  - Heart rate increased [Recovering/Resolving]

NARRATIVE: CASE EVENT DATE: 20240309
